FAERS Safety Report 4305661-3 (Version None)
Quarter: 2004Q1

REPORT INFORMATION
  Report Type: 
  Country: None (occurrence: None)
  Receive Date: 20040226
  Receipt Date: 20040106
  Transmission Date: 20041129
  Serious: No
  Sender: FDA-Public Use
  Company Number: US-BRISTOL-MYERS SQUIBB COMPANY-12469722

PATIENT
  Age: 34 Year
  Sex: Female
  Weight: 99 kg

DRUGS (1)
  1. ABILIFY [Suspect]
     Indication: SCHIZOPHRENIA
     Dosage: INITIATED ON 26-DEC-2003: 7.5 MG/DAY, INCREASED TO 15 MG/DAY AFTER 5-6 DAYS.
     Route: 048

REACTIONS (2)
  - DYSPEPSIA [None]
  - NAUSEA [None]
